FAERS Safety Report 5373203-X (Version None)
Quarter: 2007Q2

REPORT INFORMATION
  Report Type: 
  Country: None (occurrence: None)
  Receive Date: 20070626
  Receipt Date: 20070614
  Transmission Date: 20071010
  Serious: Yes (Other)
  Sender: FDA-Public Use
  Company Number: T200700628

PATIENT
  Age: 50 Year
  Sex: Male
  Weight: 77.6 kg

DRUGS (8)
  1. OPTIRAY 300 [Suspect]
     Indication: COMPUTERISED TOMOGRAM
     Dosage: 123 ML, SINGLE, INTRAVENOUS
     Route: 042
     Dates: start: 20070525, end: 20070525
  2. LANTUS [Concomitant]
  3. NOVOLOG [Concomitant]
  4. BENICAR HCT       (HYDROCHLOROTHIAZIDE, OLMESARTAN MEDOXOMIL) [Concomitant]
  5. CLONIDINE [Concomitant]
  6. HYDROMORPHONE HCL [Concomitant]
  7. ONDANSETRONE [Concomitant]
  8. PANTOPRAZOLE SODIUM [Concomitant]

REACTIONS (2)
  - DYSPNOEA [None]
  - OBSTRUCTIVE AIRWAYS DISORDER [None]
